FAERS Safety Report 15799165 (Version 3)
Quarter: 2019Q1

REPORT INFORMATION
  Report Type: Spontaneous
  Country: CA (occurrence: CA)
  Receive Date: 20190108
  Receipt Date: 20190215
  Transmission Date: 20190417
  Serious: No
  Sender: FDA-Public Use
  Company Number: CA-JAZZ-2018-CA-016931

PATIENT
  Sex: Female

DRUGS (1)
  1. XYREM [Suspect]
     Active Substance: SODIUM OXYBATE
     Indication: EXPOSURE VIA BODY FLUID
     Route: 050

REACTIONS (2)
  - Exposure via body fluid [Unknown]
  - Exposure during pregnancy [Unknown]
